FAERS Safety Report 21797903 (Version 2)
Quarter: 2023Q1

REPORT INFORMATION
  Report Type: Spontaneous
  Country: US (occurrence: US)
  Receive Date: 20221230
  Receipt Date: 20230130
  Transmission Date: 20230417
  Serious: Yes (Hospitalization)
  Sender: FDA-Public Use
  Company Number: US-AVEO ONCOLOGY-2022-AVEO-US000616

PATIENT

DRUGS (15)
  1. FOTIVDA [Suspect]
     Active Substance: TIVOZANIB HYDROCHLORIDE
     Indication: Renal cell carcinoma
     Dosage: 0.89 MG, DAILY FOR 21 DAYS WITH 7 DAYS OFF (28-DAY CYCLE)
     Route: 048
     Dates: start: 20221205, end: 20221223
  2. VITAMIN B12 [Concomitant]
     Active Substance: CYANOCOBALAMIN
     Dosage: 1000 MCG, DAILY 1 P.O. EVERY DAY
     Route: 048
     Dates: start: 20220314
  3. DIETARY SUPPLEMENT\HERBALS\MILK THISTLE [Concomitant]
     Active Substance: DIETARY SUPPLEMENT\HERBALS\MILK THISTLE
     Dosage: 150 MG, DAILY
     Route: 048
     Dates: start: 20220314
  4. NYSTATIN [Concomitant]
     Active Substance: NYSTATIN
     Dosage: 100,000 ML 5 CC SWISH AND SWALLOW 4X PER DAY
     Route: 048
     Dates: start: 20220613
  5. OMEPRAZOLE [Concomitant]
     Active Substance: OMEPRAZOLE
     Indication: Gastrooesophageal reflux disease
     Dosage: 20 MG, BID
     Route: 048
     Dates: start: 20230116
  6. PREDNISONE [Concomitant]
     Active Substance: PREDNISONE
     Dosage: 5 MG, DAILY 2
     Route: 048
     Dates: start: 20221228
  7. TRAMADOL [Concomitant]
     Active Substance: TRAMADOL
     Dosage: 50 MG, UP TO EVERY 6-8 HOURS AS NEEDED
     Route: 048
     Dates: start: 20220208
  8. UNISOM SLEEPTABS [Concomitant]
     Active Substance: DOXYLAMINE SUCCINATE
     Dosage: 50 MG, DAILY
     Route: 048
     Dates: start: 20220613
  9. XANAX [Concomitant]
     Active Substance: ALPRAZOLAM
     Dosage: 0.25 MG, DAILY PRN
     Route: 048
     Dates: start: 20230110
  10. MELATONIN [Concomitant]
     Active Substance: MELATONIN
  11. HYDROCHLOROTHIAZIDE [Concomitant]
     Active Substance: HYDROCHLOROTHIAZIDE
  12. MOTRIN [Concomitant]
     Active Substance: IBUPROFEN
  13. QUERCETIN [Concomitant]
     Active Substance: QUERCETIN
  14. VITAMIN D [Concomitant]
     Active Substance: VITAMIN D NOS
  15. ZYRTEC [Concomitant]
     Active Substance: CETIRIZINE HYDROCHLORIDE

REACTIONS (2)
  - Hypertensive crisis [Unknown]
  - Aphasia [Recovered/Resolved]

NARRATIVE: CASE EVENT DATE: 20221223
